FAERS Safety Report 8798988 (Version 1)
Quarter: 2012Q4

REPORT INFORMATION
  Report Type: Spontaneous
  Country: US (occurrence: None)
  Receive Date: 20120913
  Receipt Date: 20120913
  Transmission Date: 20130627
  Serious: Yes (Disabling, Other)
  Sender: FDA-Public Use
  Company Number: ACO_23566_2011

PATIENT
  Age: 51 Year
  Sex: Male
  Weight: 81.6 kg

DRUGS (3)
  1. AMPYRA [Suspect]
     Route: 048
  2. COPAXONE (GLATIRAMER ACETATE) [Concomitant]
  3. TYSABRI (NATALIZUMAB) [Concomitant]

REACTIONS (2)
  - Drug ineffective [None]
  - Abasia [None]
